FAERS Safety Report 8836534 (Version 1)
Quarter: 2012Q4

REPORT INFORMATION
  Report Type: Spontaneous
  Country: US (occurrence: None)
  Receive Date: 20121009
  Receipt Date: 20121009
  Transmission Date: 20130627
  Serious: No
  Sender: FDA-Public Use
  Company Number: 2012-00161

PATIENT
  Age: 40 Year
  Sex: Male
  Weight: 81.65 kg

DRUGS (3)
  1. ZICAM [Suspect]
     Indication: COLD
     Dates: start: 20120916
  2. ZICAM [Suspect]
     Indication: PROPHYLAXIS
     Dates: start: 20120916
  3. MULTIVITAMIN [Concomitant]

REACTIONS (2)
  - Ageusia [None]
  - Anosmia [None]
